FAERS Safety Report 14121778 (Version 2)
Quarter: 2020Q3

REPORT INFORMATION
  Report Type: Report from Study
  Country: IT (occurrence: IT)
  Receive Date: 20171024
  Receipt Date: 20171106
  Transmission Date: 20201104
  Serious: Yes (Death)
  Sender: FDA-Public Use
  Company Number: IT-JNJFOC-20161206383

PATIENT
  Age: 64 Year
  Sex: Female
  Weight: 92 kg

DRUGS (4)
  1. BEVACIZUMAB. [Suspect]
     Active Substance: BEVACIZUMAB
     Indication: OVARIAN CANCER RECURRENT
     Dosage: CYCLE OF LAST ADMIN: 34; INTENDED DOSE
     Route: 065
     Dates: start: 20140805, end: 20161007
  2. TRABECTEDIN [Suspect]
     Active Substance: TRABECTEDIN
     Indication: OVARIAN CANCER
     Dosage: INTENDED DOSE 0.8 MG/M2 AND CYCLE OF LAST ADMIN: 35
     Route: 042
     Dates: start: 20140805, end: 20161028
  3. CARBOPLATIN. [Suspect]
     Active Substance: CARBOPLATIN
     Indication: OVARIAN CANCER RECURRENT
     Dosage: CYCLE 6, INTENDED DOSE 4 (AUC)
     Route: 065
     Dates: start: 20140805, end: 20141230
  4. TRABECTEDIN [Suspect]
     Active Substance: TRABECTEDIN
     Route: 042

REACTIONS (1)
  - Acute leukaemia [Fatal]

NARRATIVE: CASE EVENT DATE: 20161129
